FAERS Safety Report 11066694 (Version 1)
Quarter: 2015Q2

REPORT INFORMATION
  Report Type: Spontaneous
  Country: US (occurrence: None)
  Receive Date: 20150416
  Receipt Date: 20150416
  Transmission Date: 20150821
  Serious: Yes (Death)
  Sender: FDA-Public Use
  Company Number: 2013P1006553

PATIENT
  Age: 80 Year
  Sex: Male

DRUGS (1)
  1. RILUTEK [Suspect]
     Active Substance: RILUZOLE
     Indication: AMYOTROPHIC LATERAL SCLEROSIS
     Route: 048

REACTIONS (3)
  - Death [None]
  - Malaise [None]
  - Abdominal discomfort [None]

NARRATIVE: CASE EVENT DATE: 201303
